FAERS Safety Report 18467188 (Version 1)
Quarter: 2020Q4

REPORT INFORMATION
  Report Type: Report from Study
  Country: US (occurrence: US)
  Receive Date: 20201105
  Receipt Date: 20201105
  Transmission Date: 20210114
  Serious: Yes (Other)
  Sender: FDA-Public Use
  Company Number: US-TAKEDA-2019TUS044479

PATIENT
  Sex: Female

DRUGS (1)
  1. BRIGATINIB [Suspect]
     Active Substance: BRIGATINIB
     Indication: BENIGN NEOPLASM
     Dosage: 90 MILLIGRAM
     Route: 065
     Dates: start: 201907

REACTIONS (7)
  - Blood creatine phosphokinase decreased [Unknown]
  - Blood creatine phosphokinase increased [Not Recovered/Not Resolved]
  - Blood iron decreased [Unknown]
  - Deafness [Unknown]
  - Urinary tract infection [Unknown]
  - Dehydration [Unknown]
  - Off label use [Unknown]
